FAERS Safety Report 8574346-X (Version None)
Quarter: 2012Q3

REPORT INFORMATION
  Report Type: 
  Country: None (occurrence: None)
  Receive Date: 20120806
  Receipt Date: 20120503
  Transmission Date: 20120928
  Serious: Yes (Other)
  Sender: FDA-Public Use
  Company Number: CHPA2012US010348

PATIENT
  Sex: Female

DRUGS (3)
  1. EXCEDRIN EXTRA STRENGTH TABLETS [Suspect]
     Dosage: 2 DF, 3 TIMES A WEEK
     Route: 048
     Dates: start: 20100101
  2. ALUMINUM HYDROXIDE AND MAGNESIUM TRISILICATE [Suspect]
     Dosage: UNK, UNK
     Route: 048
  3. EXCEDRIN EXTRA STRENGTH TABLETS [Suspect]
     Indication: SOMNOLENCE
     Dosage: 2 DF, QD
     Route: 048
     Dates: end: 20100101

REACTIONS (8)
  - APHASIA [None]
  - ABDOMINAL PAIN UPPER [None]
  - MUSCULAR WEAKNESS [None]
  - CEREBRAL HAEMORRHAGE [None]
  - MEMORY IMPAIRMENT [None]
  - MOBILITY DECREASED [None]
  - ABDOMINAL DISTENSION [None]
  - TRANSIENT ISCHAEMIC ATTACK [None]
